FAERS Safety Report 5941188-0 (Version None)
Quarter: 2008Q4

REPORT INFORMATION
  Report Type: 
  Country: None (occurrence: None)
  Receive Date: 20081104
  Receipt Date: 20081027
  Transmission Date: 20090506
  Serious: Yes (Life-Threatening, Disabling, Other)
  Sender: FDA-Public Use
  Company Number: AU-PFIZER INC-2008085342

PATIENT
  Sex: Female

DRUGS (2)
  1. CHAMPIX [Suspect]
     Indication: SMOKING CESSATION THERAPY
     Route: 048
     Dates: start: 20080801, end: 20080901
  2. YASMIN [Concomitant]
     Route: 048

REACTIONS (7)
  - AFFECT LABILITY [None]
  - ANGER [None]
  - ANXIETY [None]
  - DEPRESSION [None]
  - INTERCEPTED DRUG ADMINISTRATION ERROR [None]
  - SOMNOLENCE [None]
  - TEARFULNESS [None]
